FAERS Safety Report 9286069 (Version 3)
Quarter: 2014Q3

REPORT INFORMATION
  Report Type: Spontaneous
  Country: US (occurrence: None)
  Receive Date: 20130507
  Receipt Date: 20140723
  Transmission Date: 20150326
  Serious: Yes (Disabling, Other)
  Sender: FDA-Public Use
  Company Number: 1305-568

PATIENT
  Age: 84 Year
  Sex: Male

DRUGS (5)
  1. TAMSULOSIN (TAMSULOSIN) [Concomitant]
     Active Substance: TAMSULOSIN
  2. EYLEA [Suspect]
     Active Substance: AFLIBERCEPT
     Indication: AGE-RELATED MACULAR DEGENERATION
     Dosage: 2 MG, 1 IN 5 WK
     Route: 031
     Dates: start: 20120216, end: 20130520
  3. ATIVAN [Concomitant]
     Active Substance: LORAZEPAM
  4. ZANTAC [Concomitant]
     Active Substance: RANITIDINE HYDROCHLORIDE
  5. TRAMADOL (TRAMADOL) [Concomitant]
     Active Substance: TRAMADOL

REACTIONS (4)
  - Uveitis [None]
  - Blindness [None]
  - Vitreous floaters [None]
  - Vitritis [None]

NARRATIVE: CASE EVENT DATE: 20130424
